FAERS Safety Report 4754100-7 (Version None)
Quarter: 2005Q3

REPORT INFORMATION
  Report Type: 
  Country: None (occurrence: None)
  Receive Date: 20050824
  Receipt Date: 20050611
  Transmission Date: 20060218
  Serious: No
  Sender: FDA-Public Use
  Company Number: SUS1-2005-00476

PATIENT
  Age: 76 Year
  Sex: Male

DRUGS (4)
  1. FOSRENOL [Suspect]
     Indication: HYPERPHOSPHATAEMIA
     Dosage: 500 MG, 6-8 PER DAY
     Dates: start: 20050301
  2. MINOXIDIL [Concomitant]
  3. ATENOLOL [Concomitant]
  4. CLONIDINE [Concomitant]

REACTIONS (1)
  - TOOTH FRACTURE [None]
